FAERS Safety Report 6477424-4 (Version None)
Quarter: 2009Q4

REPORT INFORMATION
  Report Type: 
  Country: None (occurrence: None)
  Receive Date: 20091207
  Receipt Date: 20091117
  Transmission Date: 20100525
  Serious: Yes (Hospitalization)
  Sender: FDA-Public Use
  Company Number: US-SANOFI-AVENTIS-200922173GDDC

PATIENT
  Age: 69 Year
  Sex: Male
  Weight: 75.45 kg

DRUGS (18)
  1. TAXOTERE [Suspect]
     Route: 042
     Dates: start: 20090506, end: 20090506
  2. TAXOTERE [Suspect]
     Route: 041
     Dates: start: 20090930, end: 20090930
  3. BLINDED THERAPY [Suspect]
     Route: 048
     Dates: start: 20090506, end: 20091025
  4. ASPIRIN [Concomitant]
  5. TRAVATAN [Concomitant]
  6. POTASSIUM CHLORIDE [Concomitant]
  7. VITAMIN PREPARATION COMPOUND [Concomitant]
  8. ZANTAC [Concomitant]
  9. PRED FORTE [Concomitant]
  10. TRUSOPT [Concomitant]
  11. ALPHAGAN [Concomitant]
  12. COMPAZINE [Concomitant]
  13. AMBIEN [Concomitant]
  14. NITROSTAT [Concomitant]
  15. IPRATROPIUM BROMIDE/SALBUTAMOL SULFATE [Concomitant]
  16. COLACE [Concomitant]
  17. XANAX [Concomitant]
  18. DIAMOX SRC [Concomitant]

REACTIONS (8)
  - DECREASED APPETITE [None]
  - DEHYDRATION [None]
  - DRY MOUTH [None]
  - DYSGEUSIA [None]
  - FATIGUE [None]
  - HYPOALBUMINAEMIA [None]
  - HYPOKALAEMIA [None]
  - WEIGHT DECREASED [None]
